FAERS Safety Report 8548571 (Version 4)
Quarter: 2013Q3

REPORT INFORMATION
  Report Type: Spontaneous
  Country: DK (occurrence: DK)
  Receive Date: 20120507
  Receipt Date: 20130916
  Transmission Date: 20140515
  Serious: Yes (Life-Threatening, Hospitalization)
  Sender: FDA-Public Use
  Company Number: DK-UCBSA-056484

PATIENT
  Age: 72 Year
  Sex: Female
  Weight: 40 kg

DRUGS (2)
  1. CIMZIA [Suspect]
     Indication: RHEUMATOID ARTHRITIS
     Dosage: STRENGTH: 200 MG
     Route: 058
     Dates: start: 20120115, end: 20120301
  2. METHOTREXATE [Concomitant]
     Indication: RHEUMATOID ARTHRITIS
     Dates: start: 19820111, end: 20120307

REACTIONS (7)
  - Acute interstitial pneumonitis [Recovered/Resolved]
  - Lung infiltration [Recovered/Resolved]
  - Dyspnoea [Recovered/Resolved]
  - Pyrexia [Recovered/Resolved]
  - Cough [Recovered/Resolved]
  - Chronic obstructive pulmonary disease [Not Recovered/Not Resolved]
  - Interstitial lung disease [Not Recovered/Not Resolved]
